FAERS Safety Report 14021780 (Version 2)
Quarter: 2017Q4

REPORT INFORMATION
  Report Type: Report from Study
  Country: US (occurrence: US)
  Receive Date: 20170928
  Receipt Date: 20171226
  Transmission Date: 20180321
  Serious: Yes (Hospitalization)
  Sender: FDA-Public Use
  Company Number: US-CLOVIS ONCOLOGY-CLO-2017-000947

PATIENT
  Age: 52 Year
  Sex: Female

DRUGS (3)
  1. RUBRACA [Suspect]
     Active Substance: RUCAPARIB CAMSYLATE
     Dosage: 300 MG, BID
     Route: 048
     Dates: start: 20170811, end: 20171206
  2. RUBRACA [Suspect]
     Active Substance: RUCAPARIB CAMSYLATE
     Indication: OVARIAN CANCER
     Dosage: 300 MG, BID
     Route: 048
     Dates: start: 20170815, end: 201709
  3. RUBRACA [Suspect]
     Active Substance: RUCAPARIB CAMSYLATE
     Dosage: 400 MG, BID
     Route: 048
     Dates: start: 201709, end: 20171113

REACTIONS (8)
  - Haemoglobin decreased [Unknown]
  - Vomiting [Unknown]
  - Drug dose omission [Unknown]
  - White blood cell count decreased [Unknown]
  - Constipation [Unknown]
  - Underdose [Unknown]
  - Sneezing [Unknown]
  - Increased appetite [Unknown]

NARRATIVE: CASE EVENT DATE: 2017
